FAERS Safety Report 18514341 (Version 1)
Quarter: 2020Q4

REPORT INFORMATION
  Report Type: Spontaneous
  Country: SA (occurrence: SA)
  Receive Date: 20201118
  Receipt Date: 20201118
  Transmission Date: 20210114
  Serious: Yes (Hospitalization, Other)
  Sender: FDA-Public Use
  Company Number: SA-ACCORD-207888

PATIENT
  Age: 30 Year
  Sex: Male

DRUGS (2)
  1. CAPECITABINE. [Suspect]
     Active Substance: CAPECITABINE
     Indication: COLORECTAL CANCER
     Dosage: COMPLETED 4 CYCLES
  2. OXALIPLATIN. [Suspect]
     Active Substance: OXALIPLATIN
     Indication: COLORECTAL CANCER
     Dosage: COMPLETED FOUR CYCLES

REACTIONS (2)
  - Neuropathy peripheral [Unknown]
  - Acute promyelocytic leukaemia [Recovered/Resolved]
